FAERS Safety Report 18213725 (Version 1)
Quarter: 2020Q3

REPORT INFORMATION
  Report Type: Spontaneous
  Country: US (occurrence: US)
  Receive Date: 20200831
  Receipt Date: 20200831
  Transmission Date: 20201103
  Serious: Yes (Other)
  Sender: FDA-Public Use
  Company Number: US-CARLSBAD TECHNOLOGY, INC.-2089215

PATIENT
  Age: 62 Year
  Sex: Female
  Weight: 77.27 kg

DRUGS (1)
  1. CEFACLOR (ANDA 065412) [Suspect]
     Active Substance: CEFACLOR
     Route: 048

REACTIONS (1)
  - Anaphylactic reaction [Recovered/Resolved with Sequelae]
